FAERS Safety Report 11820645 (Version 2)
Quarter: 2017Q4

REPORT INFORMATION
  Report Type: Spontaneous
  Country: US (occurrence: US)
  Receive Date: 20151210
  Receipt Date: 20171010
  Transmission Date: 20180320
  Serious: No
  Sender: FDA-Public Use
  Company Number: US-JNJFOC-20150514550

PATIENT
  Sex: Female

DRUGS (30)
  1. FOLIC ACID. [Concomitant]
     Active Substance: FOLIC ACID
  2. MULTIVITAMINS W/FLUORIDE [Concomitant]
  3. ASPIRIN. [Concomitant]
     Active Substance: ASPIRIN
  4. OXYBUTYNIN CHLORIDE. [Concomitant]
     Active Substance: OXYBUTYNIN CHLORIDE
  5. TRIAMCINOLONE [Concomitant]
     Active Substance: TRIAMCINOLONE
  6. LEVOTHYROXINE SODIUM. [Concomitant]
     Active Substance: LEVOTHYROXINE SODIUM
  7. DHEA [Concomitant]
     Active Substance: PRASTERONE
  8. GINKGO BILOBA EXTRACT [Concomitant]
     Active Substance: GINKGO
  9. FUROSEMIDE. [Concomitant]
     Active Substance: FUROSEMIDE
  10. CALCIUM [Concomitant]
     Active Substance: CALCIUM
  11. D-3 [Concomitant]
     Active Substance: CHOLECALCIFEROL
  12. VITAMIN B COMPLEX [Concomitant]
     Active Substance: CYANOCOBALAMIN\DEXPANTHENOL\NIACINAMIDE\PYRIDOXINE HYDROCHLORIDE\RIBOFLAVIN 5^-PHOSPHATE SODIUM\THIAMINE HYDROCHLORIDE\VITAMIN B COMPLEX
  13. IRON SULFATE [Concomitant]
     Active Substance: FERROUS SULFATE ANHYDROUS
  14. FENUGREEK [Concomitant]
     Active Substance: FENUGREEK SEED
  15. TEA TREE OIL. [Concomitant]
     Active Substance: TEA TREE OIL
  16. FISH OIL W/TOCOPHEROL [Concomitant]
  17. LYRICA [Concomitant]
     Active Substance: PREGABALIN
  18. VITAMIN C [Concomitant]
     Active Substance: ASCORBIC ACID
  19. COCONUT OIL [Concomitant]
     Active Substance: COCONUT OIL
  20. ALENDRONATE SODIUM. [Concomitant]
     Active Substance: ALENDRONATE SODIUM
  21. MAGNESIUM [Concomitant]
     Active Substance: MAGNESIUM
  22. BIFIDOBACTERIUM LACTIS [Concomitant]
     Active Substance: BIFIDOBACTERIUM ANIMALIS LACTIS
  23. OLEA EUROPAEA LEAF EXTRACT [Concomitant]
     Active Substance: HERBALS
  24. VITAMIN B12 [Concomitant]
     Active Substance: CYANOCOBALAMIN
  25. GABAPENTIN. [Concomitant]
     Active Substance: GABAPENTIN
  26. ELEUTHEROCOCCUS SENTICOSUS [Concomitant]
     Active Substance: ELEUTHERO
  27. IMBRUVICA [Suspect]
     Active Substance: IBRUTINIB
     Indication: CHRONIC LYMPHOCYTIC LEUKAEMIA
     Route: 048
     Dates: start: 20141018
  28. IMBRUVICA [Suspect]
     Active Substance: IBRUTINIB
     Indication: CHRONIC LYMPHOCYTIC LEUKAEMIA
     Route: 048
     Dates: start: 20141018
  29. MULTIVITAMIN [Concomitant]
     Active Substance: VITAMINS
  30. PANTOPRAZOLE SODIUM. [Concomitant]
     Active Substance: PANTOPRAZOLE SODIUM

REACTIONS (11)
  - Stomatitis [Unknown]
  - Sensitivity of teeth [Unknown]
  - Hypoacusis [Unknown]
  - Onychomycosis [Unknown]
  - Nocturia [Unknown]
  - Muscle spasms [Unknown]
  - Abdominal pain upper [Unknown]
  - Nasal ulcer [Not Recovered/Not Resolved]
  - Headache [Unknown]
  - Vision blurred [Unknown]
  - Cough [Unknown]

NARRATIVE: CASE EVENT DATE: 2015
